FAERS Safety Report 7031469-4 (Version None)
Quarter: 2010Q4

REPORT INFORMATION
  Report Type: 
  Country: None (occurrence: None)
  Receive Date: 20101006
  Receipt Date: 20100928
  Transmission Date: 20110411
  Serious: Yes (Other)
  Sender: FDA-Public Use
  Company Number: US-PFIZER INC-2009270887

PATIENT
  Sex: Male
  Weight: 65.76 kg

DRUGS (5)
  1. CHANTIX [Suspect]
     Indication: SMOKING CESSATION THERAPY
     Dosage: UNK
     Dates: start: 20090909, end: 20100101
  2. LEXAPRO [Concomitant]
     Dosage: UNK
  3. SIMVASTATIN [Concomitant]
     Dosage: UNK
  4. TRAZODONE [Concomitant]
  5. CHLORDIAZEPOXIDE [Concomitant]
     Dosage: UNK

REACTIONS (3)
  - AGGRESSION [None]
  - NAUSEA [None]
  - PERSONALITY CHANGE [None]
